FAERS Safety Report 23108137 (Version 1)
Quarter: 2023Q4

REPORT INFORMATION
  Report Type: Spontaneous
  Country: ID (occurrence: ID)
  Receive Date: 20231026
  Receipt Date: 20231026
  Transmission Date: 20240110
  Serious: Yes (Hospitalization, Other)
  Sender: FDA-Public Use
  Company Number: ID-MACLEODS PHARMACEUTICALS US LTD-MAC2023043969

PATIENT

DRUGS (2)
  1. CLOBETASOL [Suspect]
     Active Substance: CLOBETASOL
     Indication: Ichthyosis
     Dosage: UNK (0,05% CREAM)
     Route: 061
  2. MOMETASONE [Suspect]
     Active Substance: MOMETASONE
     Indication: Ichthyosis
     Dosage: 1 PERCENT  (MOMETASONE FUROATE)
     Route: 061

REACTIONS (1)
  - Acarodermatitis [Recovering/Resolving]
